FAERS Safety Report 7599655-2 (Version None)
Quarter: 2011Q2

REPORT INFORMATION
  Report Type: 
  Country: None (occurrence: None)
  Receive Date: 20110629
  Receipt Date: 20110615
  Transmission Date: 20111010
  Serious: Yes (Hospitalization)
  Sender: FDA-Public Use
  Company Number: 2011MA007215

PATIENT
  Age: 12 Year
  Sex: Male

DRUGS (1)
  1. IBUPROFEN [Suspect]
     Indication: H1N1 INFLUENZA

REACTIONS (10)
  - HEART RATE INCREASED [None]
  - GASTRITIS [None]
  - ATELECTASIS [None]
  - GASTROINTESTINAL HAEMORRHAGE [None]
  - HAEMATEMESIS [None]
  - OESOPHAGEAL PERFORATION [None]
  - NAUSEA [None]
  - VOMITING [None]
  - RETCHING [None]
  - PETECHIAE [None]
